FAERS Safety Report 9518401 (Version 1)
Quarter: 2013Q3

REPORT INFORMATION
  Report Type: Spontaneous
  Country: US (occurrence: None)
  Receive Date: 20130910
  Receipt Date: 20130910
  Transmission Date: 20140515
  Serious: Yes (Other)
  Sender: FDA-Public Use
  Company Number: None

PATIENT
  Age: 71 Year
  Sex: Male

DRUGS (5)
  1. PROPAFENONE [Suspect]
     Indication: ARRHYTHMIA
     Dosage: 150MG TID PO
     Route: 048
     Dates: start: 20130615
  2. FLECAINIDE [Suspect]
     Indication: ARRHYTHMIA
     Dosage: 50 MG BID PO
     Route: 048
     Dates: start: 20130619, end: 20130807
  3. ADVAIR [Concomitant]
  4. PROAIR [Concomitant]
  5. WARFARIN [Concomitant]

REACTIONS (2)
  - Cardiac failure congestive [None]
  - Blood pressure increased [None]
